FAERS Safety Report 11471952 (Version 4)
Quarter: 2015Q4

REPORT INFORMATION
  Report Type: Spontaneous
  Country: IT (occurrence: IT)
  Receive Date: 20150908
  Receipt Date: 20151113
  Transmission Date: 20160304
  Serious: Yes (Hospitalization)
  Sender: FDA-Public Use
  Company Number: IT-PFIZER INC-2015295878

PATIENT
  Age: 18 Year
  Sex: Female

DRUGS (2)
  1. ALPRAZOLAM. [Suspect]
     Active Substance: ALPRAZOLAM
     Dosage: 1 MG, SINGLE
     Route: 048
     Dates: start: 20150810, end: 20150810
  2. DELORAZEPAM [Suspect]
     Active Substance: DELORAZEPAM
     Dosage: 40 ML
     Route: 048
     Dates: start: 20150810, end: 20150810

REACTIONS (2)
  - Drug abuse [Recovered/Resolved with Sequelae]
  - Vomiting [Recovered/Resolved with Sequelae]

NARRATIVE: CASE EVENT DATE: 20150810
